FAERS Safety Report 4685716-4 (Version None)
Quarter: 2005Q2

REPORT INFORMATION
  Report Type: 
  Country: None (occurrence: None)
  Receive Date: 20050608
  Receipt Date: 20050520
  Transmission Date: 20051028
  Serious: Yes (Death)
  Sender: FDA-Public Use
  Company Number: DSA_26478_2005

PATIENT
  Sex: Male

DRUGS (22)
  1. DILTIAZEM [Suspect]
     Indication: ILL-DEFINED DISORDER
     Dosage: 60 MG BID
  2. ATORVASTATIN CALCIUM [Suspect]
     Indication: ILL-DEFINED DISORDER
     Dosage: 10 MG
  3. LACTULOSE [Suspect]
     Indication: ILL-DEFINED DISORDER
     Dosage: 3.35 DF
  4. SPIRONOLACTONE [Suspect]
     Indication: ILL-DEFINED DISORDER
     Dosage: 50 MG
  5. TEMAZEPAM [Suspect]
     Indication: ILL-DEFINED DISORDER
     Dosage: 10 MG QHS
  6. COMBIVENT [Suspect]
     Indication: ILL-DEFINED DISORDER
     Dosage: DF QID
  7. SALBUTAMOL [Concomitant]
  8. ACETYLSALICYLIC ACID SRT [Concomitant]
  9. BECLOMETHASONE DIPROPIONATE [Concomitant]
  10. FRUMIL [Concomitant]
  11. DEXAMETHASONE [Concomitant]
  12. DOSULEPIN [Concomitant]
  13. FUROSEMIDE [Concomitant]
  14. GAVISCON [Concomitant]
  15. LANSOPRAZOLE [Concomitant]
  16. METOCLOPRAMIDE [Concomitant]
  17. NITROLINGUAL [Concomitant]
  18. NOZINAN [Concomitant]
  19. OXYCODONE HCL [Concomitant]
  20. OXYGEN [Concomitant]
  21. SYMBICORT TURBUHALER [Concomitant]
  22. TIOTROPIUM BROMIDE [Concomitant]

REACTIONS (1)
  - LUNG NEOPLASM MALIGNANT [None]
